FAERS Safety Report 15878318 (Version 3)
Quarter: 2019Q2

REPORT INFORMATION
  Report Type: Spontaneous
  Country: US (occurrence: US)
  Receive Date: 20190128
  Receipt Date: 20190617
  Transmission Date: 20190711
  Serious: No
  Sender: FDA-Public Use
  Company Number: US-PFIZER INC-2019032837

PATIENT
  Age: 56 Year
  Sex: Female
  Weight: 80.74 kg

DRUGS (7)
  1. PREMPRO [Suspect]
     Active Substance: ESTROGENS, CONJUGATED\MEDROXYPROGESTERONE ACETATE
     Indication: MENOPAUSE
     Dosage: 0.625 MG, UNK
     Dates: start: 201801, end: 20190107
  2. PREMPRO [Suspect]
     Active Substance: ESTROGENS, CONJUGATED\MEDROXYPROGESTERONE ACETATE
     Indication: MENOPAUSAL SYMPTOMS
     Dosage: UNK, DAILY (0.625/2.5MG BY MOUTH DAILY)
     Route: 048
     Dates: start: 20190215
  3. PRAVASTATIN. [Concomitant]
     Active Substance: PRAVASTATIN
     Indication: BLOOD CHOLESTEROL
     Dosage: 40 MG, 1X/DAY [40 MG TABLET, TAKES 1 TABLET PER DAY BY MOUTH]
     Route: 048
     Dates: start: 2009
  4. LEVOTHYROXINE. [Concomitant]
     Active Substance: LEVOTHYROXINE
     Indication: THYROID DISORDER
     Dosage: 112 UG, 1X/DAY [112 MCG TABLET, TAKES 1 TABLET PER DAY BY MOUTH]
     Route: 048
  5. FISH OIL [Concomitant]
     Active Substance: FISH OIL
     Indication: BLOOD CHOLESTEROL
     Dosage: 1200 MG, 1X/DAY [1200 MG CAPSULE, TAKES 1 CAPSULE PER DAY BY MOUTH]
     Route: 048
     Dates: start: 2009
  6. D3 ADULT GUMMIES [Concomitant]
     Indication: BONE DISORDER
     Dosage: 2000 IU, 1X/DAY [2000 IU GUMMY, TAKES 1 PER DAY BY MOUTH]
     Route: 048
     Dates: start: 2014
  7. THYROID [Concomitant]
     Active Substance: LEVOTHYROXINE\LIOTHYRONINE
     Indication: HYPOTHYROIDISM
     Dosage: 1.25 MG, DAILY

REACTIONS (4)
  - Product dose omission [Not Recovered/Not Resolved]
  - Migraine [Not Recovered/Not Resolved]
  - Headache [Not Recovered/Not Resolved]
  - Impaired work ability [Unknown]

NARRATIVE: CASE EVENT DATE: 201901
